FAERS Safety Report 7587079-3 (Version None)
Quarter: 2011Q3

REPORT INFORMATION
  Report Type: 
  Country: None (occurrence: None)
  Receive Date: 20110701
  Receipt Date: 20110619
  Transmission Date: 20111222
  Serious: Yes (Death, Hospitalization)
  Sender: FDA-Public Use
  Company Number: PHHY2011DE55002

PATIENT
  Sex: Female
  Weight: 86 kg

DRUGS (8)
  1. STATINS [Concomitant]
  2. RASILEZ HCT [Suspect]
     Indication: HYPERTENSION
     Dosage: 150 MG ALIS AND 12.5 MG HYDR DAILY
     Route: 048
     Dates: start: 20100517, end: 20101119
  3. EXFORGE [Suspect]
     Indication: HYPERTENSION
     Dosage: 10 MG AMLO AND 160 MG VALS DAILY
     Route: 048
     Dates: start: 20081222, end: 20100517
  4. EXFORGE HCT [Suspect]
     Indication: HYPERTENSION
     Dosage: 10 MG AMLO + 320 MG VALS + 25 MG HYDR DAILY
     Route: 048
     Dates: start: 20100517, end: 20101119
  5. ACE INHIBITOR NOS [Concomitant]
  6. VASODILATORS USED IN CARDIAC DISEASES [Concomitant]
  7. INSULIN [Concomitant]
     Indication: DIABETES MELLITUS
  8. BETA BLOCKING AGENTS [Concomitant]

REACTIONS (1)
  - PNEUMONIA ASPIRATION [None]
